FAERS Safety Report 8427061-7 (Version None)
Quarter: 2012Q2

REPORT INFORMATION
  Report Type: 
  Country: None (occurrence: None)
  Receive Date: 20120323
  Receipt Date: 20110426
  Transmission Date: 20120825
  Serious: Yes (Hospitalization)
  Sender: FDA-Public Use
  Company Number: 163-21880-11043463

PATIENT
  Age: 80 Year
  Sex: Male

DRUGS (4)
  1. REVLIMID [Suspect]
     Indication: MULTIPLE MYELOMA
     Dosage: 5 MG,1 IN 1 D, PO
     Route: 048
     Dates: start: 20090127
  2. XANAX [Concomitant]
  3. TESTOSTERONE ENANTHATE [Concomitant]
  4. LEVOTHYROXINE SODIUM [Concomitant]

REACTIONS (2)
  - FULL BLOOD COUNT DECREASED [None]
  - PNEUMONIA [None]
